FAERS Safety Report 5411865-9 (Version None)
Quarter: 2007Q3

REPORT INFORMATION
  Report Type: 
  Country: None (occurrence: None)
  Receive Date: 20070713
  Receipt Date: 20070321
  Transmission Date: 20080115
  Serious: No
  Sender: FDA-Public Use
  Company Number: 2007SP000912

PATIENT
  Age: 74 Year
  Sex: Female
  Weight: 58.9676 kg

DRUGS (7)
  1. LUNESTA [Suspect]
     Indication: INSOMNIA
     Dosage: 1 MG;HS;ORAL
     Route: 048
     Dates: start: 20070228, end: 20070301
  2. PREVACID [Concomitant]
  3. ATORVASTATIN CALCIUM [Concomitant]
  4. VITAMIN CAP [Concomitant]
  5. GLUCOSAMINE [Concomitant]
  6. FOLIC ACID [Concomitant]
  7. PAXIL [Concomitant]

REACTIONS (2)
  - DRUG INEFFECTIVE [None]
  - INSOMNIA [None]
